FAERS Safety Report 7065881-4 (Version None)
Quarter: 2010Q4

REPORT INFORMATION
  Report Type: 
  Country: None (occurrence: None)
  Receive Date: 20101027
  Receipt Date: 20101018
  Transmission Date: 20110411
  Serious: Yes (Other)
  Sender: FDA-Public Use
  Company Number: PHHY2010CY69200

PATIENT
  Sex: Male

DRUGS (4)
  1. ZOMETA [Suspect]
     Indication: PROPHYLAXIS
     Dosage: 4 MG, QMO
     Dates: start: 20060829, end: 20100813
  2. AROMASIN [Concomitant]
     Dosage: UNK
  3. RADIOTHERAPY [Concomitant]
     Dosage: UNK
  4. CHEMOTHERAPEUTICS NOS [Concomitant]
     Dosage: UNK

REACTIONS (3)
  - METASTASIS [None]
  - OSTEONECROSIS OF JAW [None]
  - PALLIATIVE CARE [None]
